FAERS Safety Report 13706489 (Version 1)
Quarter: 2017Q2

REPORT INFORMATION
  Report Type: Report from Study
  Country: None (occurrence: US)
  Receive Date: 20170630
  Receipt Date: 20170630
  Transmission Date: 20170830
  Serious: Yes (Other)
  Sender: FDA-Public Use
  Company Number: US-ABBVIE-17K-163-2024150-00

PATIENT
  Sex: Male

DRUGS (1)
  1. HUMIRA [Suspect]
     Active Substance: ADALIMUMAB
     Indication: CROHN^S DISEASE
     Route: 058

REACTIONS (5)
  - Cluster headache [Unknown]
  - Amnesia [Unknown]
  - Craniocerebral injury [Unknown]
  - Irritable bowel syndrome [Unknown]
  - Intestinal resection [Recovered/Resolved]

NARRATIVE: CASE EVENT DATE: 2013
